FAERS Safety Report 6128595-0 (Version None)
Quarter: 2009Q1

REPORT INFORMATION
  Report Type: 
  Country: None (occurrence: None)
  Receive Date: 20090323
  Receipt Date: 20090317
  Transmission Date: 20090719
  Serious: No
  Sender: FDA-Public Use
  Company Number: US-B.I. PHARMACEUTICALS,INC./RIDGEFIELD-2009-BP-03309BP

PATIENT
  Sex: Female

DRUGS (9)
  1. CATAPRES-TTS-1 [Suspect]
     Indication: HYPERTENSION
     Dosage: .1MG
     Route: 061
     Dates: start: 20070101
  2. PLAVIX [Concomitant]
  3. NEXIUM [Concomitant]
     Indication: ABDOMINAL DISCOMFORT
  4. GLYBURIDE [Concomitant]
     Indication: DIABETES MELLITUS
  5. ACTOS [Concomitant]
     Indication: DIABETES MELLITUS
  6. CELEBREX [Concomitant]
     Indication: ARTHRITIS
  7. FELODIPINE [Concomitant]
     Indication: HYPERTENSION
  8. FERROUS SULFATE TAB [Concomitant]
     Indication: ANAEMIA
  9. DETROL [Concomitant]
     Indication: BLADDER DISORDER

REACTIONS (2)
  - ACNE [None]
  - PAIN IN EXTREMITY [None]
